FAERS Safety Report 9250604 (Version 1)
Quarter: 2013Q1

REPORT INFORMATION
  Report Type: Spontaneous
  Country: US (occurrence: None)
  Receive Date: 20130305
  Receipt Date: 20130305
  Transmission Date: 20140127
  Serious: Yes (Hospitalization)
  Sender: FDA-Public Use
  Company Number: 163-21880-12040305

PATIENT
  Age: 69 Year
  Sex: Male
  Weight: 142.9 kg

DRUGS (11)
  1. REVLIMID [Suspect]
     Indication: PLASMA CELL MYELOMA
     Dosage: DAILY DAYS 1-21
     Route: 048
     Dates: start: 20111219
  2. ACYCLOVIR [Concomitant]
  3. ASA (ACETYLSALICYLIC ACID) [Concomitant]
  4. BACTRIM [Concomitant]
  5. CARDURA (DOXAZOSIN MESILATE) [Concomitant]
  6. CARVEDILOL [Concomitant]
  7. CENTRUM SILVER [Concomitant]
  8. DILTIAZEM [Concomitant]
  9. IRON [Concomitant]
  10. PROSCAR [Concomitant]
  11. VENTOLIN (SALBUTAMOL) [Concomitant]

REACTIONS (1)
  - Pneumonia [None]
